FAERS Safety Report 9606891 (Version 2)
Quarter: 2013Q4

REPORT INFORMATION
  Report Type: Spontaneous
  Country: US (occurrence: US)
  Receive Date: 20131008
  Receipt Date: 20131008
  Transmission Date: 20140711
  Serious: No
  Sender: FDA-Public Use
  Company Number: US-AMGEN-USASP2013057682

PATIENT
  Age: 60 Year
  Sex: Female
  Weight: 48.71 kg

DRUGS (3)
  1. PROLIA [Suspect]
     Indication: OSTEOPOROSIS POSTMENOPAUSAL
     Dosage: UNK, Q6MO
     Route: 065
     Dates: start: 201306, end: 201307
  2. CALCIUM WITH VITAMIN D             /00944201/ [Concomitant]
  3. SYNTHROID [Concomitant]

REACTIONS (1)
  - Urticaria [Recovered/Resolved]
